FAERS Safety Report 9345628 (Version 2)
Quarter: 2013Q4

REPORT INFORMATION
  Report Type: Report from Study
  Country: CA (occurrence: CA)
  Receive Date: 20130613
  Receipt Date: 20131223
  Transmission Date: 20140711
  Serious: Yes (Other)
  Sender: FDA-Public Use
  Company Number: CA-JNJFOC-20130604942

PATIENT
  Sex: Female
  Weight: 80.74 kg

DRUGS (3)
  1. REMICADE [Suspect]
     Indication: COLITIS ULCERATIVE
     Route: 042
     Dates: start: 20110415
  2. PENICILLIN [Suspect]
     Indication: ACUTE TONSILLITIS
     Route: 048
  3. IMURAN [Concomitant]
     Route: 048

REACTIONS (2)
  - Anaphylactic reaction [Recovering/Resolving]
  - Tonsillitis [Recovered/Resolved]
